FAERS Safety Report 17433749 (Version 1)
Quarter: 2020Q1

REPORT INFORMATION
  Report Type: Spontaneous
  Country: US (occurrence: US)
  Receive Date: 20200219
  Receipt Date: 20200219
  Transmission Date: 20200409
  Serious: Yes (Other)
  Sender: FDA-Public Use
  Company Number: US-SPECGX-T201909059

PATIENT
  Sex: Male

DRUGS (1)
  1. MORPHINE [Suspect]
     Active Substance: MORPHINE
     Indication: PRODUCT USED FOR UNKNOWN INDICATION
     Dosage: UNK
     Route: 065
     Dates: start: 2019, end: 2019

REACTIONS (5)
  - Dyspnoea [Unknown]
  - Head discomfort [Unknown]
  - Spinal fracture [Unknown]
  - Product dispensing error [Unknown]
  - Fall [Unknown]

NARRATIVE: CASE EVENT DATE: 2019
